FAERS Safety Report 14174015 (Version 1)
Quarter: 2017Q4

REPORT INFORMATION
  Report Type: Spontaneous
  Country: US (occurrence: US)
  Receive Date: 20171109
  Receipt Date: 20171109
  Transmission Date: 20180321
  Serious: Yes (Other)
  Sender: FDA-Public Use
  Company Number: None

PATIENT
  Age: 54 Year
  Sex: Female
  Weight: 53.1 kg

DRUGS (2)
  1. TOPROL XL [Suspect]
     Active Substance: METOPROLOL SUCCINATE
     Indication: BLOOD PRESSURE MEASUREMENT
     Dosage: ?          QUANTITY:1.5 CAPSULE(S);?
     Route: 048
     Dates: start: 19970601, end: 20171004
  2. TOPROL XL [Suspect]
     Active Substance: METOPROLOL SUCCINATE
     Indication: TREMOR
     Dosage: ?          QUANTITY:1.5 CAPSULE(S);?
     Route: 048
     Dates: start: 19970601, end: 20171004

REACTIONS (7)
  - Rash pruritic [None]
  - Skin reaction [None]
  - Skin disorder [None]
  - Rash pustular [None]
  - Contusion [None]
  - Hyperaesthesia [None]
  - Therapy change [None]

NARRATIVE: CASE EVENT DATE: 20171001
